FAERS Safety Report 6835354-X (Version None)
Quarter: 2010Q3

REPORT INFORMATION
  Report Type: 
  Country: None (occurrence: None)
  Receive Date: 20100713
  Receipt Date: 20100704
  Transmission Date: 20110219
  Serious: Yes (Other)
  Sender: FDA-Public Use
  Company Number: CH-JNJFOC-20100702396

PATIENT

DRUGS (1)
  1. HALOPERIDOL [Suspect]
     Indication: ABNORMAL BEHAVIOUR
     Route: 065

REACTIONS (2)
  - CIRCADIAN RHYTHM SLEEP DISORDER [None]
  - COGNITIVE DISORDER [None]
